FAERS Safety Report 8295423-7 (Version None)
Quarter: 2012Q2

REPORT INFORMATION
  Report Type: 
  Country: None (occurrence: None)
  Receive Date: 20120418
  Receipt Date: 20120404
  Transmission Date: 20120825
  Serious: Yes (Hospitalization)
  Sender: FDA-Public Use
  Company Number: US-ROCHE-1052887

PATIENT
  Sex: Male
  Weight: 75.7 kg

DRUGS (14)
  1. METHOTREXATE [Concomitant]
     Indication: PRODUCT USED FOR UNKNOWN INDICATION
  2. LORAZEPAM [Concomitant]
     Route: 048
  3. VALPROIC ACID [Suspect]
     Indication: SARCOMA METASTATIC
     Route: 048
     Dates: start: 20120305, end: 20120309
  4. GEMCITABINE [Suspect]
     Dates: start: 20120316
  5. ZOFRAN [Concomitant]
     Indication: PRODUCT USED FOR UNKNOWN INDICATION
     Dates: start: 20120309
  6. GEMCITABINE HYDROCHLORIDE [Suspect]
     Indication: SARCOMA METASTATIC
     Dates: start: 20120309
  7. DEXAMETHASONE SODIUM PHOSPHATE [Concomitant]
     Indication: PRODUCT USED FOR UNKNOWN INDICATION
  8. ZOFRAN [Concomitant]
  9. MORPHINE [Concomitant]
     Indication: PRODUCT USED FOR UNKNOWN INDICATION
     Dosage: AS NEEDED
  10. MS CONTIN [Concomitant]
     Indication: PRODUCT USED FOR UNKNOWN INDICATION
     Dosage: AS NEEDED
  11. CYTARABINE [Concomitant]
     Indication: PRODUCT USED FOR UNKNOWN INDICATION
  12. DOCETAXEL [Suspect]
     Indication: SARCOMA METASTATIC
     Dates: start: 20120316
  13. AVASTIN [Suspect]
     Indication: SARCOMA METASTATIC
     Dates: start: 20120309
  14. HYDROMORPHONE HCL [Concomitant]
     Indication: PRODUCT USED FOR UNKNOWN INDICATION
     Dosage: AS NEDDED

REACTIONS (4)
  - HYPOAESTHESIA [None]
  - BACK PAIN [None]
  - FACIAL PARESIS [None]
  - MUSCULAR WEAKNESS [None]
